FAERS Safety Report 9704326 (Version 2)
Quarter: 2013Q4

REPORT INFORMATION
  Report Type: Report from Study
  Country: BR (occurrence: BR)
  Receive Date: 20131122
  Receipt Date: 20131122
  Transmission Date: 20140711
  Serious: Yes (Other)
  Sender: FDA-Public Use
  Company Number: BR-ROCHE-1242770

PATIENT
  Sex: Female
  Weight: 66 kg

DRUGS (8)
  1. ACTEMRA [Suspect]
     Indication: RHEUMATOID ARTHRITIS
     Route: 042
     Dates: start: 20110516, end: 20120301
  2. OMEPRAZOLE [Concomitant]
  3. DEFLAZACORT [Concomitant]
  4. NEOFOLIN [Concomitant]
  5. MELOXICAM [Concomitant]
  6. ALPRAZOLAM [Concomitant]
  7. ENALAPRIL [Concomitant]
  8. METHOTREXATE [Concomitant]

REACTIONS (5)
  - Decreased appetite [Unknown]
  - Depressed mood [Unknown]
  - Apathy [Unknown]
  - Weight decreased [Not Recovered/Not Resolved]
  - Arthropathy [Not Recovered/Not Resolved]
